FAERS Safety Report 5400594-3 (Version None)
Quarter: 2007Q3

REPORT INFORMATION
  Report Type: 
  Country: None (occurrence: None)
  Receive Date: 20070730
  Receipt Date: 20061003
  Transmission Date: 20080115
  Serious: No
  Sender: FDA-Public Use
  Company Number: A0622307A

PATIENT
  Age: 72 Year
  Sex: Male

DRUGS (3)
  1. ZANTAC 150 [Suspect]
     Dosage: 150MG PER DAY
     Route: 048
  2. DIOVAN [Concomitant]
  3. FLOMAX [Concomitant]

REACTIONS (2)
  - BENIGN PROSTATIC HYPERPLASIA [None]
  - URINE FLOW DECREASED [None]
